FAERS Safety Report 7650540-7 (Version None)
Quarter: 2011Q3

REPORT INFORMATION
  Report Type: 
  Country: None (occurrence: None)
  Receive Date: 20110802
  Receipt Date: 20110722
  Transmission Date: 20111222
  Serious: Yes (Death, Other)
  Sender: FDA-Public Use
  Company Number: US-BAYER-2011-038337

PATIENT
  Age: 63 Year
  Sex: Male
  Weight: 111.2 kg

DRUGS (17)
  1. SORAFENIB (RAF KINASE INHIBITOR) [Suspect]
     Indication: RENAL CELL CARCINOMA
     Dosage: 200 MG, BID DAYS 1-5, 8-12, 15-19 AND 22-26
     Route: 048
     Dates: start: 20101103, end: 20110121
  2. BEVACIZUMAB [Suspect]
     Indication: RENAL CELL CARCINOMA
     Dosage: 5 MG/KG, QD (DAYS 1 AND 15)
     Route: 042
     Dates: start: 20101103, end: 20110112
  3. NIACIN [Concomitant]
  4. CLONIDINE [Concomitant]
  5. CRESTOR [Concomitant]
  6. MULTI-VITAMINS [Concomitant]
  7. OXYCONTIN [Concomitant]
  8. TERAZOSIN HCL [Concomitant]
  9. SERTRALINE HYDROCHLORIDE [Concomitant]
  10. LOTRISONE [Concomitant]
  11. CLONAZEPAM [Concomitant]
  12. KETOROLAC TROMETHAMINE [Concomitant]
  13. ASPIRIN [Concomitant]
  14. LISINOPRIL [Concomitant]
  15. LORAZEPAM [Concomitant]
  16. FUROSEMIDE [Concomitant]
  17. ZOFRAN [Concomitant]

REACTIONS (3)
  - APHASIA [None]
  - INCOHERENT [None]
  - DEATH [None]
